FAERS Safety Report 15824851 (Version 2)
Quarter: 2019Q1

REPORT INFORMATION
  Report Type: Spontaneous
  Country: KR (occurrence: KR)
  Receive Date: 20190115
  Receipt Date: 20190118
  Transmission Date: 20190417
  Serious: Yes (Hospitalization)
  Sender: FDA-Public Use
  Company Number: KR-ROCHE-2240187

PATIENT
  Age: 48 Year
  Sex: Female
  Weight: 64 kg

DRUGS (8)
  1. HERCEPTIN [Suspect]
     Active Substance: TRASTUZUMAB
     Indication: BREAST CANCER
     Route: 042
  2. PERJETA [Suspect]
     Active Substance: PERTUZUMAB
     Indication: BREAST CANCER
     Route: 042
     Dates: start: 20170619
  3. DOCETAXEL. [Suspect]
     Active Substance: DOCETAXEL
     Indication: BREAST CANCER
     Route: 065
  4. ALBIS D [Concomitant]
     Dosage: 1 TAB
     Route: 048
     Dates: start: 20170619
  5. ZEFFIX [Concomitant]
     Active Substance: LAMIVUDINE
     Indication: CHRONIC HEPATITIS
     Dosage: 1 TABLET
     Route: 048
     Dates: start: 20160707
  6. LYRICA [Concomitant]
     Active Substance: PREGABALIN
     Route: 048
     Dates: start: 20170619, end: 20171208
  7. BEAROBAN [Concomitant]
     Route: 065
     Dates: start: 20170628
  8. CALTEO [Concomitant]
     Dosage: 2 TABLETS
     Route: 048
     Dates: start: 20170619

REACTIONS (2)
  - Anaphylactic reaction [Recovered/Resolved]
  - Febrile neutropenia [Recovered/Resolved]

NARRATIVE: CASE EVENT DATE: 20170628
